FAERS Safety Report 8558987-1 (Version None)
Quarter: 2012Q3

REPORT INFORMATION
  Report Type: 
  Country: None (occurrence: None)
  Receive Date: 20120802
  Receipt Date: 20120723
  Transmission Date: 20120928
  Serious: Yes (Other)
  Sender: FDA-Public Use
  Company Number: US-009507513-1207USA009982

PATIENT

DRUGS (14)
  1. PREDNISOLONE [Suspect]
  2. SULFAMETHOXAZOLE AND TRIMETHOPRIM [Suspect]
  3. SULFONMETHANE [Suspect]
  4. URSODIOL [Suspect]
  5. DARBEPOETIN ALFA [Suspect]
  6. LEUCOVORIN CALCIUM [Suspect]
  7. AZASITE [Suspect]
     Route: 047
  8. ALLOPURINOL [Suspect]
  9. CALCIUM CARBONATE [Suspect]
  10. ZOCOR [Suspect]
     Route: 048
  11. COTAZYM CAPSULES [Suspect]
     Route: 048
  12. COLISTIN [Suspect]
  13. TACROLIMUS [Suspect]
     Dosage: 1.5-2 MG
  14. LANSOPRAZOLE [Suspect]

REACTIONS (5)
  - FORCED EXPIRATORY VOLUME DECREASED [None]
  - BLOOD CREATININE INCREASED [None]
  - PALPITATIONS [None]
  - HYDRONEPHROSIS [None]
  - MATERNAL EXPOSURE DURING PREGNANCY [None]
